FAERS Safety Report 4298571-1 (Version None)
Quarter: 2004Q1

REPORT INFORMATION
  Report Type: 
  Country: None (occurrence: None)
  Receive Date: 20040126
  Receipt Date: 20030923
  Transmission Date: 20041129
  Serious: No
  Sender: FDA-Public Use
  Company Number: USA030948042

PATIENT
  Age: 6 Year
  Sex: Female
  Weight: 22 kg

DRUGS (2)
  1. STRATTERA [Suspect]
     Indication: DAYDREAMING
     Dosage: 25 MG/1 IN THE EVENING
     Dates: start: 20030912
  2. STRATTERA [Suspect]
     Indication: DISTURBANCE IN ATTENTION
     Dosage: 25 MG/1 IN THE EVENING
     Dates: start: 20030912

REACTIONS (3)
  - HYPERKINESIA [None]
  - LOGORRHOEA [None]
  - PSYCHOMOTOR HYPERACTIVITY [None]
